FAERS Safety Report 24116064 (Version 1)
Quarter: 2024Q3

REPORT INFORMATION
  Report Type: Spontaneous
  Country: US (occurrence: US)
  Receive Date: 20240722
  Receipt Date: 20240722
  Transmission Date: 20241016
  Serious: No
  Sender: BIONPHARMA
  Company Number: US-Bion-013450

PATIENT
  Age: 50 Year
  Sex: Female

DRUGS (2)
  1. NAPROXEN SODIUM [Suspect]
     Active Substance: NAPROXEN\NAPROXEN SODIUM
     Indication: Product used for unknown indication
     Dosage: 2 LIQUID GELS
     Route: 048
  2. INSULIN NOS [Concomitant]
     Active Substance: INSULIN NOS
     Indication: Product used for unknown indication

REACTIONS (1)
  - Blood glucose increased [Recovered/Resolved with Sequelae]
